FAERS Safety Report 6296407-0 (Version None)
Quarter: 2009Q3

REPORT INFORMATION
  Report Type: 
  Country: None (occurrence: None)
  Receive Date: 20090803
  Receipt Date: 20090803
  Transmission Date: 20100115
  Serious: Yes (Life-Threatening)
  Sender: FDA-Public Use
  Company Number: None

PATIENT
  Age: 68 Year
  Sex: Female
  Weight: 70.3075 kg

DRUGS (5)
  1. ENBREL [Suspect]
     Indication: RHEUMATOID ARTHRITIS
     Dosage: 50 MG EACH WEEK SQ
     Route: 058
     Dates: start: 20081101, end: 20090723
  2. METHOTREXATE [Concomitant]
  3. PLAQUENIL [Concomitant]
  4. SULFASALAZINE [Concomitant]
  5. PREDNISONE [Concomitant]

REACTIONS (2)
  - ADENOCARCINOMA [None]
  - METASTASES TO LIVER [None]
